FAERS Safety Report 5067670-9 (Version None)
Quarter: 2006Q3

REPORT INFORMATION
  Report Type: 
  Country: None (occurrence: None)
  Receive Date: 20060728
  Receipt Date: 20060710
  Transmission Date: 20061208
  Serious: Yes (Other)
  Sender: FDA-Public Use
  Company Number: USA040671482

PATIENT
  Age: 67 Year
  Sex: Female

DRUGS (6)
  1. EVISTA [Suspect]
     Indication: OSTEOPENIA
     Dosage: ORAL
     Route: 048
     Dates: start: 20000101
  2. EVISTA [Suspect]
     Indication: OSTEOPOROSIS
     Dosage: ORAL
     Route: 048
     Dates: start: 20000101
  3. VITAMINS [Concomitant]
  4. LIPITOR [Concomitant]
  5. AXID (NIZATIDINE) AMPOULE [Concomitant]
  6. FOSAMAX /ITA/ (ALENDRONATE SODIUM) [Concomitant]

REACTIONS (5)
  - BREAST CANCER FEMALE [None]
  - BREAST PAIN [None]
  - BREAST TENDERNESS [None]
  - INTRAOCULAR PRESSURE INCREASED [None]
  - LYMPHADENOPATHY [None]
